FAERS Safety Report 12933713 (Version 2)
Quarter: 2016Q4

REPORT INFORMATION
  Report Type: Report from Study
  Country: PL (occurrence: PL)
  Receive Date: 20161111
  Receipt Date: 20161206
  Transmission Date: 20170207
  Serious: No
  Sender: FDA-Public Use
  Company Number: PL-BAYER-2016-087216

PATIENT
  Age: 42 Year
  Sex: Female

DRUGS (1)
  1. BETAFERON [Suspect]
     Active Substance: INTERFERON BETA-1B
     Indication: MULTIPLE SCLEROSIS
     Dosage: UNK, QOD
     Route: 058
     Dates: start: 201507

REACTIONS (6)
  - Blood iron decreased [None]
  - Platelet count decreased [None]
  - Asthenia [None]
  - Coital bleeding [None]
  - Menorrhagia [None]
  - Platelet count decreased [None]

NARRATIVE: CASE EVENT DATE: 2016
